FAERS Safety Report 8443824-6 (Version None)
Quarter: 2012Q2

REPORT INFORMATION
  Report Type: 
  Country: None (occurrence: None)
  Receive Date: 20120618
  Receipt Date: 20120606
  Transmission Date: 20120825
  Serious: Yes (Other)
  Sender: FDA-Public Use
  Company Number: US-SANOFI-AVENTIS-2012SA040966

PATIENT
  Age: 56 Year
  Sex: Female

DRUGS (3)
  1. SOLOSTAR [Suspect]
     Indication: TYPE 2 DIABETES MELLITUS
     Dates: start: 20110101
  2. LANTUS [Suspect]
     Indication: TYPE 2 DIABETES MELLITUS
     Dosage: 45 UNITS IN THE AM AND 20 UNITS IN THE PM
     Route: 058
     Dates: start: 20110101
  3. METFORMIN HCL [Concomitant]

REACTIONS (2)
  - ORAL SURGERY [None]
  - GLYCOSYLATED HAEMOGLOBIN INCREASED [None]
